FAERS Safety Report 6805714-1 (Version None)
Quarter: 2010Q2

REPORT INFORMATION
  Report Type: 
  Country: None (occurrence: None)
  Receive Date: 20100628
  Receipt Date: 20080618
  Transmission Date: 20101027
  Serious: Yes (Other)
  Sender: FDA-Public Use
  Company Number: US-PFIZER INC-2008051470

PATIENT
  Sex: Male
  Weight: 83.5 kg

DRUGS (15)
  1. SUTENT [Suspect]
     Indication: METASTATIC RENAL CELL CARCINOMA
     Route: 048
     Dates: start: 20080327, end: 20080617
  2. TAMSULOSIN HCL [Concomitant]
  3. PRILOSEC [Concomitant]
  4. ADVAIR DISKUS 100/50 [Concomitant]
  5. SPIRIVA [Concomitant]
  6. ALBUTEROL [Concomitant]
  7. ALEVE (CAPLET) [Concomitant]
  8. VICODIN [Concomitant]
  9. LIPITOR [Concomitant]
  10. GLYCERIN [Concomitant]
  11. SALEX [Concomitant]
  12. PREDNISONE [Concomitant]
  13. VALSARTAN [Concomitant]
  14. STOMATOLOGICALS, MOUTH PREPARATIONS [Concomitant]
  15. ALL OTHER THERAPEUTIC PRODUCTS [Concomitant]

REACTIONS (1)
  - EJECTION FRACTION DECREASED [None]
